FAERS Safety Report 9154815 (Version 3)
Quarter: 2013Q1

REPORT INFORMATION
  Report Type: Spontaneous
  Country: DE (occurrence: None)
  Receive Date: 20130208
  Receipt Date: 20130327
  Transmission Date: 20140127
  Serious: Yes (Hospitalization)
  Sender: FDA-Public Use
  Company Number: 2013MPI00040

PATIENT
  Age: 20 Year
  Sex: Male

DRUGS (11)
  1. BRENTUXIMAB VEDOTIN [Suspect]
     Indication: HODGKIN^S DISEASE
     Route: 042
     Dates: start: 20121220, end: 20130114
  2. CYCLOPHOSPHAMIDE (CYCLOPHOSPHAMIDE) [Suspect]
     Indication: HODGKIN^S DISEASE
     Dates: start: 20121221, end: 20130115
  3. DOXORUBICIN (DOXORUBICIN) (DOXORUBICIN) [Suspect]
     Indication: HODGKIN^S DISEASE
     Dates: start: 20121221, end: 20130115
  4. ETOPOSIDE (ETOPOSIDE) [Suspect]
     Indication: HODGKIN^S DISEASE
     Dates: start: 20121212, end: 20130117
  5. DACARBAZINE [Suspect]
     Indication: HODGKIN^S DISEASE
     Dates: start: 20121222, end: 20130117
  6. DEXAMETHASONE (DEXAMETHASONE) [Suspect]
     Indication: HODGKIN^S DISEASE
     Dates: start: 20121221, end: 20130118
  7. NEULASTA (PEGFILIGRASTIM) [Concomitant]
  8. PANTOZOL (ERYTHROMYCIN ETHYSUCCINATE, SULFAFURAZOLE) [Concomitant]
  9. ACICLOVIR (ACICLOVIR SODIUM) [Concomitant]
  10. CIPROBAY (CIPROFLOXACIN LACTATE) [Concomitant]
  11. TRIMETHOPRIM [Concomitant]

REACTIONS (4)
  - Febrile neutropenia [None]
  - Febrile bone marrow aplasia [None]
  - Anaemia [None]
  - C-reactive protein increased [None]
